FAERS Safety Report 24210477 (Version 2)
Quarter: 2024Q3

REPORT INFORMATION
  Report Type: Spontaneous
  Country: PT (occurrence: PT)
  Receive Date: 20240814
  Receipt Date: 20240927
  Transmission Date: 20241017
  Serious: Yes (Other)
  Sender: ORGANON
  Company Number: None

PATIENT
  Age: 72 Year
  Sex: Female
  Weight: 38.6 kg

DRUGS (8)
  1. FOSAMAX [Suspect]
     Active Substance: ALENDRONATE SODIUM
     Indication: Osteoporosis
     Dosage: 70 MG, EVERY WEEK
     Route: 048
     Dates: start: 2021, end: 2022
  2. PROLIA [Suspect]
     Active Substance: DENOSUMAB
     Indication: Osteoporosis
     Dosage: FORMULATION: INJECTABLE SOLUTION IN PREFILLED SYRINGE, 60 MG, 1 ADMINISTRATION EVERY 6 MONTHS
     Dates: start: 202206, end: 20240106
  3. BISOPROLOL [Concomitant]
     Active Substance: BISOPROLOL\BISOPROLOL FUMARATE
     Dosage: 5 MG, EVERY 24 HOURS, AT LUNCH
  4. ASPIRIN [Concomitant]
     Active Substance: ASPIRIN
     Dosage: 100MG, EVERY 24 HOURS, AT LUNCH
  5. ZARATOR [ATORVASTATIN CALCIUM] [Concomitant]
     Dosage: 10 MG, EVERY 24 HOURS, AT DINNER
  6. EGOSTAR [Concomitant]
     Dosage: ONLY OCTOBER TO MARCH EACH YEAR
  7. IBUPROFEN [Concomitant]
     Active Substance: IBUPROFEN
     Dosage: UNK
  8. CALCIUM CARBONATE\CHOLECALCIFEROL [Concomitant]
     Active Substance: CALCIUM CARBONATE\CHOLECALCIFEROL
     Dosage: STRENGTH: 1500 MG + 400 U.I, 1 TOTAL, EVERY 24 HOURS, IN THE MORNING

REACTIONS (1)
  - Osteonecrosis of jaw [Recovering/Resolving]

NARRATIVE: CASE EVENT DATE: 20240705
